FAERS Safety Report 13961648 (Version 8)
Quarter: 2018Q4

REPORT INFORMATION
  Report Type: Report from Study
  Country: BE (occurrence: BE)
  Receive Date: 20170912
  Receipt Date: 20181018
  Transmission Date: 20190204
  Serious: Yes (Death, Life-Threatening, Hospitalization)
  Sender: FDA-Public Use
  Company Number: PHHO2017BE011885

PATIENT
  Age: 79 Year
  Sex: Female
  Weight: 53 kg

DRUGS (8)
  1. LETROZOLE. [Suspect]
     Active Substance: LETROZOLE
     Indication: BREAST CANCER
     Dosage: 3 MG, QD
     Route: 048
     Dates: start: 20170728, end: 20170805
  2. COLCHICINE. [Concomitant]
     Active Substance: COLCHICINE
     Indication: GOUT
     Dosage: MG PRN
     Route: 048
  3. DUAVENT [Concomitant]
     Indication: EMPHYSEMA
     Dosage: 2 DF, BID
     Route: 055
     Dates: start: 20170803, end: 20170806
  4. PARACETAMOL [Concomitant]
     Active Substance: ACETAMINOPHEN
     Indication: ARTHRITIS
     Dosage: UNK
     Route: 048
     Dates: start: 20170803, end: 20170806
  5. TENIF [Concomitant]
     Indication: HYPERTENSION
     Dosage: MG, QD
     Route: 048
     Dates: start: 20170803, end: 20170806
  6. FUROSEMIDE. [Concomitant]
     Active Substance: FUROSEMIDE
     Indication: OEDEMA
     Dosage: 20 MG, QD
     Dates: start: 20170801, end: 20170806
  7. DUOVENT [Concomitant]
     Active Substance: FENOTEROL HYDROBROMIDE
     Indication: EMPHYSEMA
     Dosage: 2 MG, BID
     Route: 055
     Dates: start: 20170803, end: 20170806
  8. LEE011 [Suspect]
     Active Substance: RIBOCICLIB
     Indication: BREAST CANCER
     Dosage: 600 MG, QD
     Route: 048
     Dates: start: 20170728, end: 20170805

REACTIONS (2)
  - Sepsis [Fatal]
  - General physical health deterioration [Not Recovered/Not Resolved]

NARRATIVE: CASE EVENT DATE: 20170805
